FAERS Safety Report 9310494 (Version 1)
Quarter: 2013Q2

REPORT INFORMATION
  Report Type: Spontaneous
  Country: US (occurrence: US)
  Receive Date: 20130527
  Receipt Date: 20130527
  Transmission Date: 20140414
  Serious: No
  Sender: FDA-Public Use
  Company Number: US-PFIZER INC-2013157417

PATIENT
  Age: 56 Year
  Sex: Female
  Weight: 49.89 kg

DRUGS (2)
  1. LYRICA [Suspect]
     Indication: NERVE INJURY
     Dosage: 250 MG, 2X/DAY
     Dates: start: 2009, end: 201305
  2. LIDOCAINE [Concomitant]
     Dosage: UNK

REACTIONS (3)
  - Off label use [Unknown]
  - Pain [Not Recovered/Not Resolved]
  - Insomnia [Not Recovered/Not Resolved]
